FAERS Safety Report 10442003 (Version 1)
Quarter: 2014Q3

REPORT INFORMATION
  Report Type: Spontaneous
  Country: JP (occurrence: JP)
  Receive Date: 20140909
  Receipt Date: 20140909
  Transmission Date: 20150326
  Serious: Yes (Hospitalization)
  Sender: FDA-Public Use
  Company Number: JP-GLAXOSMITHKLINE-B1031085A

PATIENT
  Sex: Female

DRUGS (4)
  1. CYMBALTA [Concomitant]
     Active Substance: DULOXETINE HYDROCHLORIDE
     Dosage: 20MG PER DAY
     Route: 048
     Dates: start: 201405
  2. LAMICTAL [Suspect]
     Active Substance: LAMOTRIGINE
     Indication: BIPOLAR DISORDER
     Dosage: 125MG TWICE PER DAY
     Route: 048
     Dates: start: 2014
  3. LAMICTAL [Suspect]
     Active Substance: LAMOTRIGINE
     Indication: BIPOLAR DISORDER
     Dosage: 100MG TWICE PER DAY
     Route: 048
     Dates: end: 2014
  4. LAMICTAL [Suspect]
     Active Substance: LAMOTRIGINE
     Indication: BIPOLAR DISORDER
     Route: 048

REACTIONS (10)
  - Depression [Recovering/Resolving]
  - Headache [Unknown]
  - Anxiety [Recovering/Resolving]
  - Fatigue [Recovering/Resolving]
  - Listless [Unknown]
  - Dizziness postural [Unknown]
  - Dizziness [Unknown]
  - Depression [Unknown]
  - Mobility decreased [Unknown]
  - Head discomfort [Unknown]

NARRATIVE: CASE EVENT DATE: 2014
